FAERS Safety Report 5121491-7 (Version None)
Quarter: 2006Q4

REPORT INFORMATION
  Report Type: 
  Country: None (occurrence: None)
  Receive Date: 20061003
  Receipt Date: 20060920
  Transmission Date: 20070319
  Serious: Yes (Hospitalization)
  Sender: FDA-Public Use
  Company Number: 2006082164

PATIENT
  Age: 55 Year
  Sex: Male
  Weight: 52 kg

DRUGS (12)
  1. SUTENT [Suspect]
     Indication: RENAL CELL CARCINOMA STAGE UNSPECIFIED
     Dosage: 37.5 MG (37.5 MG, 1 IN 1 D), ORAL
     Route: 048
     Dates: start: 20060405, end: 20060613
  2. FENTANYL [Concomitant]
  3. SODIUM PICOSULFATE (SODIUM PICOSULFATE) [Concomitant]
  4. TRIAMCINOLONE ACETONIDE [Concomitant]
  5. FERROUS CITRATE [Concomitant]
  6. BROTIZOLAM (BROTIZOLAM) [Concomitant]
  7. DEXAMETHASONE TAB [Concomitant]
  8. POVIDONE IODINE [Concomitant]
  9. LANOCONAZOLE (LANOCONAZOLE) [Concomitant]
  10. REBAMIPIDE (REBAMIPIDE) [Concomitant]
  11. LOXOPROFEN SODIUM (LOXOPROFEN SODIUM) [Concomitant]
  12. IOPAMIDOL [Concomitant]

REACTIONS (5)
  - ANAEMIA [None]
  - CONDITION AGGRAVATED [None]
  - DISEASE PROGRESSION [None]
  - HYPERCALCAEMIA [None]
  - METASTASES TO BONE [None]
